FAERS Safety Report 5509990-7 (Version None)
Quarter: 2007Q4

REPORT INFORMATION
  Report Type: 
  Country: None (occurrence: None)
  Receive Date: 20071107
  Receipt Date: 20071107
  Transmission Date: 20080405
  Serious: Yes (Other)
  Sender: FDA-Public Use
  Company Number: None

PATIENT
  Sex: Male

DRUGS (3)
  1. REVLIMID [Suspect]
     Indication: MYELODYSPLASTIC SYNDROME
     Dosage: 5MG DAILY PO
     Route: 048
     Dates: start: 20070912, end: 20070927
  2. PROCRIT [Concomitant]
  3. HYTRIN [Concomitant]

REACTIONS (10)
  - ASTHENIA [None]
  - COUGH [None]
  - CULTURE URINE POSITIVE [None]
  - DYSPNOEA [None]
  - FATIGUE [None]
  - HEART RATE INCREASED [None]
  - HYPERVENTILATION [None]
  - MYOCARDIAL INFARCTION [None]
  - PYREXIA [None]
  - STREPTOCOCCAL INFECTION [None]
